FAERS Safety Report 18279055 (Version 2)
Quarter: 2020Q4

REPORT INFORMATION
  Report Type: Report from Study
  Country: DE (occurrence: DE)
  Receive Date: 20200917
  Receipt Date: 20201006
  Transmission Date: 20210113
  Serious: Yes (Other)
  Sender: FDA-Public Use
  Company Number: DE-IBIGEN-2020.09301

PATIENT
  Age: 61 Year
  Sex: Male

DRUGS (9)
  1. COMBACTAM [Suspect]
     Active Substance: SULBACTAM SODIUM
     Indication: ERYSIPELAS
     Dosage: TIME INTERVAL: 0.33 D
     Route: 042
     Dates: start: 20181029, end: 20181031
  2. PIPERACILLIN. [Suspect]
     Active Substance: PIPERACILLIN SODIUM
     Indication: ERYSIPELAS
     Dosage: TIME INTERVAL: 0.33 D
     Route: 042
     Dates: start: 20181029, end: 20181031
  3. VISMODEGIB. [Suspect]
     Active Substance: VISMODEGIB
     Indication: BASAL CELL CARCINOMA
     Route: 048
     Dates: start: 20161212, end: 20170721
  4. VISMODEGIB. [Suspect]
     Active Substance: VISMODEGIB
     Indication: BASAL CELL CARCINOMA
     Route: 048
     Dates: start: 20180702, end: 20180817
  5. VISMODEGIB. [Suspect]
     Active Substance: VISMODEGIB
     Indication: BASAL CELL CARCINOMA
     Route: 048
     Dates: start: 20190621, end: 20190816
  6. VISMODEGIB. [Suspect]
     Active Substance: VISMODEGIB
     Indication: BASAL CELL CARCINOMA
     Route: 048
     Dates: start: 20190201, end: 20190427
  7. VISMODEGIB. [Suspect]
     Active Substance: VISMODEGIB
     Indication: BASAL CELL CARCINOMA
     Route: 048
     Dates: start: 20180201, end: 20180406
  8. VISMODEGIB. [Suspect]
     Active Substance: VISMODEGIB
     Indication: BASAL CELL CARCINOMA
     Route: 048
     Dates: start: 20170912, end: 20171130
  9. CLINDAMYCIN. [Suspect]
     Active Substance: CLINDAMYCIN
     Indication: ERYSIPELAS
     Dosage: TIME INTERVAL: 0.33 D
     Route: 042
     Dates: start: 20181031, end: 20181109

REACTIONS (2)
  - Blood creatine phosphokinase increased [Recovered/Resolved]
  - Skin infection [Recovered/Resolved]

NARRATIVE: CASE EVENT DATE: 20170721
